FAERS Safety Report 11741668 (Version 2)
Quarter: 2016Q1

REPORT INFORMATION
  Report Type: Spontaneous
  Country: US (occurrence: US)
  Receive Date: 20151116
  Receipt Date: 20160108
  Transmission Date: 20160525
  Serious: Yes (Hospitalization)
  Sender: FDA-Public Use
  Company Number: US-BAYER-2015-459846

PATIENT
  Age: 80 Year
  Sex: Male

DRUGS (13)
  1. XOFIGO [Suspect]
     Active Substance: RADIUM RA-223 DICHLORIDE
     Indication: PROSTATE CANCER
     Dosage: UNK
     Route: 042
     Dates: start: 20151203, end: 20151203
  2. NORCO [Concomitant]
     Active Substance: ACETAMINOPHEN\HYDROCODONE BITARTRATE
     Indication: PAIN
     Dosage: 10/325 MG PRN Q 6 HOURS
  3. ZOLADEX [Concomitant]
     Active Substance: GOSERELIN ACETATE
     Dosage: 3.6 MG INJ Q 3 MONTHS
     Route: 058
  4. XOFIGO [Suspect]
     Active Substance: RADIUM RA-223 DICHLORIDE
     Indication: PROSTATE CANCER
     Dosage: UNK
     Route: 042
     Dates: start: 20150924, end: 20150924
  5. XOFIGO [Suspect]
     Active Substance: RADIUM RA-223 DICHLORIDE
     Indication: PROSTATE CANCER
     Dosage: UNK
     Route: 042
     Dates: start: 20151102, end: 20151102
  6. CARDURA [Concomitant]
     Active Substance: DOXAZOSIN MESYLATE
     Dosage: 4 MG, QD
     Route: 048
  7. ALBUTEROL. [Concomitant]
     Active Substance: ALBUTEROL
     Dosage: PRN Q4-6 HOURS
  8. XTANDI [Concomitant]
     Active Substance: ENZALUTAMIDE
     Dosage: 160 MG, QD
     Route: 048
  9. ASPIRIN. [Concomitant]
     Active Substance: ASPIRIN
     Dosage: 325 MG, QD
     Route: 048
  10. FLONASE [Concomitant]
     Active Substance: FLUTICASONE PROPIONATE
     Route: 045
  11. IMODIUM [Concomitant]
     Active Substance: LOPERAMIDE HYDROCHLORIDE
     Indication: DIARRHOEA
     Dosage: 1 DF, PRN
  12. ALLEGRA [Concomitant]
     Active Substance: FEXOFENADINE HYDROCHLORIDE
     Dosage: 180 MG, QD
     Route: 048
  13. LIPITOR [Concomitant]
     Active Substance: ATORVASTATIN CALCIUM
     Dosage: 40 MG

REACTIONS (7)
  - Chills [None]
  - Pyrexia [None]
  - Diarrhoea [None]
  - Sepsis [None]
  - Systemic inflammatory response syndrome [None]
  - Asthenia [None]
  - Anaemia [None]

NARRATIVE: CASE EVENT DATE: 20151001
